FAERS Safety Report 6909327-2 (Version None)
Quarter: 2010Q3

REPORT INFORMATION
  Report Type: 
  Country: None (occurrence: None)
  Receive Date: 20100805
  Receipt Date: 20100727
  Transmission Date: 20110219
  Serious: Yes (Hospitalization, Other)
  Sender: FDA-Public Use
  Company Number: PHMT2006CA01333

PATIENT
  Sex: Female

DRUGS (6)
  1. SANDOSTATIN LAR [Suspect]
     Indication: ACROMEGALY
     Dosage: 20 MG, EVERY 4 WEEKS
     Route: 030
     Dates: start: 20050628
  2. ALTACE [Concomitant]
  3. CODEINE [Concomitant]
     Dosage: 30 MG, UNK
  4. HYDROCHLOROTHIAZIDE [Concomitant]
  5. AMLODIPINE [Concomitant]
  6. SYNTHROID [Concomitant]

REACTIONS (7)
  - ABNORMAL SENSATION IN EYE [None]
  - BLOOD PRESSURE INCREASED [None]
  - BREAST DISORDER [None]
  - BREAST MASS [None]
  - HEADACHE [None]
  - NIPPLE EXUDATE BLOODY [None]
  - PERICARDITIS [None]
